FAERS Safety Report 13163296 (Version 1)
Quarter: 2017Q1

REPORT INFORMATION
  Report Type: Spontaneous
  Country: CN (occurrence: CN)
  Receive Date: 20170130
  Receipt Date: 20170130
  Transmission Date: 20170428
  Serious: Yes (Other)
  Sender: FDA-Public Use
  Company Number: CN-JNJFOC-20170122756

PATIENT

DRUGS (1)
  1. ITRACONAZOLE. [Suspect]
     Active Substance: ITRACONAZOLE
     Indication: SYSTEMIC MYCOSIS
     Dosage: EVERY 12 HOURS FOR THE FIRST 48 HOURS,??FOLLOWED BY 200 MG DAILY FROM DAY 3 TO DAY 14
     Route: 042

REACTIONS (15)
  - Hypokalaemia [Unknown]
  - Headache [Unknown]
  - Cough [Unknown]
  - Blood bilirubin increased [Unknown]
  - Rash [Unknown]
  - Herpes simplex [Unknown]
  - Hyperglycaemia [Unknown]
  - Renal impairment [Unknown]
  - Dizziness [Unknown]
  - Respiratory failure [Unknown]
  - Gastrointestinal haemorrhage [Unknown]
  - Alanine aminotransferase increased [Unknown]
  - Hypocalcaemia [Unknown]
  - Diarrhoea [Unknown]
  - Haemorrhage intracranial [Unknown]
